FAERS Safety Report 26076079 (Version 1)
Quarter: 2025Q4

REPORT INFORMATION
  Report Type: Spontaneous
  Country: CN (occurrence: CN)
  Receive Date: 20251121
  Receipt Date: 20251121
  Transmission Date: 20260117
  Serious: Yes (Hospitalization)
  Sender: MERCK SHARP & DOHME LLC
  Company Number: CN-009507513-2350794

PATIENT
  Age: 54 Year
  Sex: Female
  Weight: 39 kg

DRUGS (6)
  1. KEYTRUDA [Suspect]
     Active Substance: PEMBROLIZUMAB
     Indication: Cervix carcinoma
     Dosage: TIME INTERVAL: TOTAL: 200 MG, ONCE, IN-PUMP INJECTION
     Dates: start: 20251106, end: 20251106
  2. SODIUM CHLORIDE [Concomitant]
     Active Substance: SODIUM CHLORIDE
     Indication: Medication dilution
     Dosage: TIME INTERVAL: TOTAL: 100 ML, ONCE, IN-PUMP INJECTION
     Dates: start: 20251106, end: 20251106
  3. SODIUM CHLORIDE [Concomitant]
     Active Substance: SODIUM CHLORIDE
     Indication: Medication dilution
     Dosage: TIME INTERVAL: TOTAL: 60 ML, ONCE, IN-PUMP INJECTION
     Dates: start: 20251106, end: 20251106
  4. SODIUM CHLORIDE [Concomitant]
     Active Substance: SODIUM CHLORIDE
     Indication: Medication dilution
     Dosage: TIME INTERVAL: TOTAL: 500 ML, ONCE
     Route: 041
     Dates: start: 20251106, end: 20251106
  5. PACLITAXEL [Suspect]
     Active Substance: PACLITAXEL
     Indication: Cervix carcinoma
     Dosage: TIME INTERVAL: TOTAL: 300 MG, ONCE, IN-PUMP INJECTION
     Dates: start: 20251106, end: 20251106
  6. CISPLATIN [Suspect]
     Active Substance: CISPLATIN
     Indication: Cervix carcinoma
     Dosage: TIME INTERVAL: TOTAL: 90 MG, ONCE
     Route: 041
     Dates: start: 20251106, end: 20251106

REACTIONS (1)
  - Myelosuppression [Recovering/Resolving]

NARRATIVE: CASE EVENT DATE: 20251109
